FAERS Safety Report 14584985 (Version 1)
Quarter: 2018Q1

REPORT INFORMATION
  Report Type: Spontaneous
  Country: US (occurrence: US)
  Receive Date: 20180301
  Receipt Date: 20180301
  Transmission Date: 20180509
  Serious: No
  Sender: FDA-Public Use
  Company Number: US-VISTAPHARM, INC.-VER201710-000787

PATIENT
  Sex: Female

DRUGS (12)
  1. OMEPRAZOLE. [Concomitant]
     Active Substance: OMEPRAZOLE
     Indication: PRODUCT USED FOR UNKNOWN INDICATION
  2. ONDANSETRON ODT [Concomitant]
     Active Substance: ONDANSETRON
     Indication: VOMITING
  3. PROMETHAZINE [Concomitant]
     Active Substance: PROMETHAZINE\PROMETHAZINE HYDROCHLORIDE
     Indication: VOMITING
  4. SERTRALINE [Concomitant]
     Active Substance: SERTRALINE HYDROCHLORIDE
     Indication: ANTIDEPRESSANT THERAPY
     Dates: start: 201709
  5. ONDANSETRON ODT [Concomitant]
     Active Substance: ONDANSETRON
     Indication: NAUSEA
  6. OXYCODONE [Suspect]
     Active Substance: OXYCODONE
     Indication: PAIN
  7. FENTANYL TRANSDERMAL SYSTEM [Concomitant]
     Active Substance: FENTANYL
     Indication: PAIN
     Route: 062
     Dates: start: 201706
  8. DICYCLOMINE [Concomitant]
     Active Substance: DICYCLOMINE HYDROCHLORIDE
     Indication: PRODUCT USED FOR UNKNOWN INDICATION
  9. PROMETHAZINE [Concomitant]
     Active Substance: PROMETHAZINE\PROMETHAZINE HYDROCHLORIDE
     Indication: NAUSEA
  10. TOPIRAMATE. [Concomitant]
     Active Substance: TOPIRAMATE
     Indication: PRODUCT USED FOR UNKNOWN INDICATION
     Dates: start: 201708
  11. POTASSIUM SUPPLEMENT [Concomitant]
     Active Substance: POTASSIUM
     Indication: SUPPLEMENTATION THERAPY
     Dates: start: 201709
  12. SUCRALFATE. [Concomitant]
     Active Substance: SUCRALFATE
     Indication: PRODUCT USED FOR UNKNOWN INDICATION
     Dates: start: 201707

REACTIONS (2)
  - Accidental overdose [Unknown]
  - Drug ineffective [Unknown]
